FAERS Safety Report 5627277-9 (Version None)
Quarter: 2008Q1

REPORT INFORMATION
  Report Type: 
  Country: None (occurrence: None)
  Receive Date: 20080128
  Receipt Date: 20070525
  Transmission Date: 20080703
  Serious: Yes (Other)
  Sender: FDA-Public Use
  Company Number: DSA_29968_2007

PATIENT
  Sex: Male

DRUGS (4)
  1. ISORDIL [Suspect]
     Indication: DRUG USE FOR UNKNOWN INDICATION
     Dosage: (60 MG QD ORAL), (1 DF QD ORAL)
     Route: 048
  2. TOPROL-XL [Concomitant]
  3. LISINOPRIL [Concomitant]
  4. LASIX [Concomitant]

REACTIONS (2)
  - BLOOD PRESSURE DECREASED [None]
  - DIZZINESS [None]
